FAERS Safety Report 8833182 (Version 1)
Quarter: 2012Q4

REPORT INFORMATION
  Report Type: 
  Country: US (occurrence: US)
  Receive Date: 20121010
  Receipt Date: 20121010
  Transmission Date: 20130627
  Serious: Yes (Other)
  Sender: FDA-Public Use
  Company Number: US-JNJFOC-20121003337

PATIENT

DRUGS (19)
  1. DOXORUBICIN [Suspect]
     Indication: NEUROBLASTOMA
     Dosage: over 1 hour on days 1, and 2 (course 2)
     Route: 042
  2. CISPLATIN [Suspect]
     Indication: NEUROBLASTOMA
     Dosage: over 1 hour on day 1 and 5 (course 1 and 5)
     Route: 042
  3. ETOPOSIDE [Suspect]
     Indication: NEUROBLASTOMA
     Dosage: (course 4)
     Route: 042
  4. VINCRISTINE [Suspect]
     Indication: NEUROBLASTOMA
     Dosage: or 0.05 mg/kg for weight below 10 kg, on days 1, 8, and 15 (course 2)
     Route: 042
  5. CYCLOPHOSPHAMIDE [Suspect]
     Indication: NEUROBLASTOMA
     Dosage: over 1 hour every 8 hours for 12 total doses on days -5 to -2
     Route: 042
  6. CYCLOPHOSPHAMIDE [Suspect]
     Indication: NEUROBLASTOMA
     Route: 042
  7. CYCLOPHOSPHAMIDE [Suspect]
     Indication: NEUROBLASTOMA
     Dosage: over 1 hour on days 1, and 2 (course 2)
     Route: 042
  8. IFOSFAMIDE [Suspect]
     Indication: NEUROBLASTOMA
     Dosage: over 1 hour (course 3)
     Route: 042
  9. CARBOPLATIN [Suspect]
     Indication: NEUROBLASTOMA
     Dosage: (course 4)
     Route: 042
  10. G-CSF [Suspect]
     Indication: NEUROBLASTOMA
     Dosage: 10 mg/kg/day IV daily until ANC }1,000/ml for 2 days consecutively
     Route: 042
  11. THIOTEPA [Suspect]
     Indication: NEUROBLASTOMA
     Dosage: over 2 hours for 3 days on days 7 to 5
     Route: 042
  12. ETOPOSIDE [Suspect]
     Indication: NEUROBLASTOMA
     Dosage: over 1 h on days 1 to 5 (course 3)
     Route: 065
  13. ETOPOSIDE [Suspect]
     Indication: NEUROBLASTOMA
     Dosage: over 1 h every 12 h , 6 doses, just prior to cisplatin on days 2 through 4 (course 1 and 5)
     Route: 065
  14. MESNA [Concomitant]
     Indication: NEUROBLASTOMA
     Dosage: and repeated 4 hours after each doses of cyclophosphamide
     Route: 042
  15. MESNA [Concomitant]
     Indication: NEUROBLASTOMA
     Dosage: over 1 hour on days 1, and 2 (course 3)
     Route: 042
  16. MESNA [Concomitant]
     Indication: NEUROBLASTOMA
     Route: 042
  17. MESNA [Concomitant]
     Indication: NEUROBLASTOMA
     Dosage: over 1 hour on days 1, and 2 (course 2)
     Route: 042
  18. MESNA [Concomitant]
     Indication: NEUROBLASTOMA
     Dosage: over 1 hour on days 1, and 2 (course 3)
     Route: 042
  19. MANNITOL [Concomitant]
     Indication: NEUROBLASTOMA
     Dosage: over 1 hour on day 1 and 5 (course 1 and 5)
     Route: 042

REACTIONS (3)
  - Venoocclusive disease [Unknown]
  - Off label use [Unknown]
  - Wrong technique in drug usage process [Unknown]
